FAERS Safety Report 17263834 (Version 2)
Quarter: 2020Q1

REPORT INFORMATION
  Report Type: Spontaneous
  Country: US (occurrence: US)
  Receive Date: 20200113
  Receipt Date: 20200212
  Transmission Date: 20200409
  Serious: Yes (Other)
  Sender: FDA-Public Use
  Company Number: US-AMGEN-USASP2020003261

PATIENT

DRUGS (1)
  1. BLINATUMOMAB [Suspect]
     Active Substance: BLINATUMOMAB
     Indication: B PRECURSOR TYPE ACUTE LEUKAEMIA
     Dosage: 28 MICROGRAM/24 HOURS (OVER 4 WEEKS) CYCLICAL
     Route: 042

REACTIONS (5)
  - Leukopenia [Unknown]
  - Rash [Unknown]
  - Confusional state [Unknown]
  - Transaminases increased [Unknown]
  - Dysphagia [Unknown]
